FAERS Safety Report 10191830 (Version 2)
Quarter: 2014Q3

REPORT INFORMATION
  Report Type: Spontaneous
  Country: DE (occurrence: DE)
  Receive Date: 20140523
  Receipt Date: 20140918
  Transmission Date: 20150326
  Serious: Yes (Other)
  Sender: FDA-Public Use
  Company Number: DE-ASTELLAS-2014EU005665

PATIENT
  Sex: Female

DRUGS (2)
  1. AVASTIN [Concomitant]
     Active Substance: BEVACIZUMAB
     Indication: PRODUCT USED FOR UNKNOWN INDICATION
     Dosage: UNK UNK, UNKNOWN FREQ.
     Route: 065
  2. VESIKUR [Suspect]
     Active Substance: SOLIFENACIN SUCCINATE
     Indication: HYPERTONIC BLADDER
     Dosage: UNK, ONCE DAILY
     Route: 048
     Dates: start: 20130507, end: 20140501

REACTIONS (3)
  - Vulvovaginal burning sensation [Recovering/Resolving]
  - Vulvovaginal erythema [Recovering/Resolving]
  - Vaginal infection [Recovering/Resolving]

NARRATIVE: CASE EVENT DATE: 20140501
